FAERS Safety Report 9246930 (Version 2)
Quarter: 2013Q2

REPORT INFORMATION
  Report Type: Spontaneous
  Country: CA (occurrence: CA)
  Receive Date: 20130422
  Receipt Date: 20130501
  Transmission Date: 20140414
  Serious: Yes (Other)
  Sender: FDA-Public Use
  Company Number: CA-AMGEN-CANSP2013027148

PATIENT
  Age: 71 Year
  Sex: Female
  Weight: 116 kg

DRUGS (3)
  1. NEULASTA [Suspect]
     Indication: BREAST CANCER STAGE III
     Dosage: 10 MG/1.0 ML
     Dates: start: 20130205
  2. CHEMOTHERAPEUTICS [Concomitant]
     Indication: BREAST CANCER STAGE III
     Dosage: UNK
  3. TYLENOL                            /00020001/ [Concomitant]
     Indication: ARTHRITIS
     Dosage: UNK

REACTIONS (12)
  - Pain [Not Recovered/Not Resolved]
  - Nausea [Not Recovered/Not Resolved]
  - Local swelling [Not Recovered/Not Resolved]
  - Pain in extremity [Not Recovered/Not Resolved]
  - Skin exfoliation [Not Recovered/Not Resolved]
  - Hypoaesthesia [Not Recovered/Not Resolved]
  - Headache [Not Recovered/Not Resolved]
  - Pelvic pain [Not Recovered/Not Resolved]
  - Lymph node pain [Not Recovered/Not Resolved]
  - Sleep disorder [Not Recovered/Not Resolved]
  - Neuropathy peripheral [Unknown]
  - Myalgia [Unknown]
